FAERS Safety Report 9425626 (Version 1)
Quarter: 2013Q3

REPORT INFORMATION
  Report Type: Spontaneous
  Country: US (occurrence: US)
  Receive Date: 20130729
  Receipt Date: 20130729
  Transmission Date: 20140515
  Serious: No
  Sender: FDA-Public Use
  Company Number: US-MYLANLABS-2013S1011972

PATIENT
  Age: 66 Year
  Sex: Female
  Weight: 65.32 kg

DRUGS (2)
  1. LEVOTHYROXINE SODIUM TABLETS, USP [Suspect]
     Indication: THYROID DISORDER
     Dates: start: 201304
  2. CHLORTHALIDONE [Concomitant]
     Indication: HYPERTENSION

REACTIONS (4)
  - Headache [Unknown]
  - Malaise [Unknown]
  - Night sweats [Unknown]
  - Unevaluable event [Unknown]
